FAERS Safety Report 5159913-8 (Version None)
Quarter: 2006Q4

REPORT INFORMATION
  Report Type: 
  Country: None (occurrence: None)
  Receive Date: 20061129
  Receipt Date: 20060508
  Transmission Date: 20070319
  Serious: No
  Sender: FDA-Public Use
  Company Number: US-GLAXOSMITHKLINE-A0604687A

PATIENT
  Age: 38 Year
  Sex: Female

DRUGS (1)
  1. WELLBUTRIN SR [Suspect]
     Dosage: 150MG TWICE PER DAY
     Route: 048
     Dates: start: 20060101

REACTIONS (1)
  - ARTHRALGIA [None]
